FAERS Safety Report 4987305-0 (Version None)
Quarter: 2006Q2

REPORT INFORMATION
  Report Type: 
  Country: None (occurrence: None)
  Receive Date: 20060501
  Receipt Date: 20041222
  Transmission Date: 20061013
  Serious: Yes (Hospitalization)
  Sender: FDA-Public Use
  Company Number: US-MERCK-0412USA02805

PATIENT
  Age: 67 Year
  Sex: Male
  Weight: 82 kg

DRUGS (6)
  1. VIOXX [Suspect]
     Indication: BACK PAIN
     Route: 048
     Dates: start: 19960101, end: 20030101
  2. VIOXX [Concomitant]
     Route: 048
     Dates: start: 19960101, end: 20030101
  3. SOMA [Concomitant]
     Route: 048
  4. RESTORIL [Concomitant]
     Route: 048
  5. LORTAB [Concomitant]
     Route: 048
  6. NORVASC [Concomitant]
     Route: 048

REACTIONS (26)
  - AMNESIA [None]
  - ANAEMIA POSTOPERATIVE [None]
  - ANGINA UNSTABLE [None]
  - ANGIOPATHY [None]
  - ATELECTASIS [None]
  - ATRIAL FIBRILLATION [None]
  - BACK PAIN [None]
  - CHEST PAIN [None]
  - CORONARY ARTERY DISEASE [None]
  - EPISTAXIS [None]
  - HYPERLIPIDAEMIA [None]
  - HYPERTENSION [None]
  - MIGRAINE WITHOUT AURA [None]
  - MITRAL VALVE INCOMPETENCE [None]
  - MYOCARDIAL INFARCTION [None]
  - OSTEOARTHRITIS [None]
  - PAIN IN EXTREMITY [None]
  - PERICARDITIS [None]
  - PERIPHERAL VASCULAR DISORDER [None]
  - PLANTAR FASCIITIS [None]
  - PROSTATITIS [None]
  - REFLUX OESOPHAGITIS [None]
  - SKIN DISORDER [None]
  - TOE DEFORMITY [None]
  - TREMOR [None]
  - URINARY TRACT INFECTION [None]
